FAERS Safety Report 7619850-3 (Version None)
Quarter: 2011Q3

REPORT INFORMATION
  Report Type: 
  Country: None (occurrence: None)
  Receive Date: 20110719
  Receipt Date: 20110707
  Transmission Date: 20111222
  Serious: Yes (Hospitalization)
  Sender: FDA-Public Use
  Company Number: US-UCBSA-035826

PATIENT
  Sex: Female
  Weight: 67.13 kg

DRUGS (8)
  1. CLONAZEPAM [Concomitant]
  2. CIMZIA [Suspect]
     Indication: CROHN'S DISEASE
     Route: 048
     Dates: start: 20090101
  3. ESTRACE [Concomitant]
  4. M.V.I. [Concomitant]
  5. CYMBALTA [Concomitant]
  6. NEXIUM [Concomitant]
     Indication: DYSPEPSIA
  7. SYNTHROID [Concomitant]
     Indication: HYPOTHYROIDISM
     Route: 048
  8. ASACOL [Concomitant]
     Indication: CROHN'S DISEASE
     Route: 048

REACTIONS (2)
  - VULVITIS [None]
  - UTERINE PROLAPSE [None]
